FAERS Safety Report 7127614-2 (Version None)
Quarter: 2010Q4

REPORT INFORMATION
  Report Type: 
  Country: None (occurrence: None)
  Receive Date: 20101130
  Receipt Date: 20101109
  Transmission Date: 20110411
  Serious: Yes (Hospitalization)
  Sender: FDA-Public Use
  Company Number: SE-AMGEN-QUU444103

PATIENT

DRUGS (2)
  1. ENBREL [Suspect]
     Indication: RHEUMATOID ARTHRITIS
     Dosage: UNK UNK, UNK
     Dates: start: 20090609
  2. PREDNISOLONE [Concomitant]
     Dosage: UNK UNK, UNK
     Dates: start: 20100118

REACTIONS (1)
  - PROSTATE CANCER [None]
